FAERS Safety Report 9173889 (Version 1)
Quarter: 2013Q1

REPORT INFORMATION
  Report Type: Spontaneous
  Country: US (occurrence: None)
  Receive Date: 20130318
  Receipt Date: 20130318
  Transmission Date: 20140127
  Serious: No
  Sender: FDA-Public Use
  Company Number: None

PATIENT
  Age: 38 Year
  Sex: Female
  Weight: 67.13 kg

DRUGS (1)
  1. DYSPORT [Suspect]
     Indication: SKIN WRINKLING
     Dosage: 2 VIALS
     Dates: start: 20130314, end: 20130314

REACTIONS (8)
  - Dry eye [None]
  - Nausea [None]
  - Anxiety [None]
  - Vision blurred [None]
  - Dizziness [None]
  - Muscle tightness [None]
  - Headache [None]
  - Fear [None]
